FAERS Safety Report 23124942 (Version 1)
Quarter: 2023Q4

REPORT INFORMATION
  Report Type: Spontaneous
  Country: IE (occurrence: IE)
  Receive Date: 20231030
  Receipt Date: 20231030
  Transmission Date: 20240110
  Serious: Yes (Death, Hospitalization, Other)
  Sender: FDA-Public Use
  Company Number: IE-AMGEN-IRLSP2023191513

PATIENT

DRUGS (34)
  1. APREMILAST [Suspect]
     Active Substance: APREMILAST
     Indication: Arthritis
     Dosage: UNK
     Route: 065
  2. ADALIMUMAB [Suspect]
     Active Substance: ADALIMUMAB\ISOPROPYL ALCOHOL
     Indication: Arthritis
     Dosage: UNK
     Route: 065
  3. AZATHIOPRINE [Concomitant]
     Active Substance: AZATHIOPRINE
     Route: 065
  4. MERCAPTOPURINE [Concomitant]
     Active Substance: MERCAPTOPURINE
     Route: 065
  5. CYCLOSPORINE [Concomitant]
     Active Substance: CYCLOSPORINE
     Route: 065
  6. LEFLUNOMIDE [Concomitant]
     Active Substance: LEFLUNOMIDE
     Route: 065
  7. MYCOPHENOLATE MOFETIL [Concomitant]
     Active Substance: MYCOPHENOLATE MOFETIL
     Route: 065
  8. MYCOPHENOLIC ACID [Concomitant]
     Active Substance: MYCOPHENOLIC ACID
     Route: 065
  9. SULFASALAZINE [Concomitant]
     Active Substance: SULFASALAZINE
     Route: 065
  10. TACROLIMUS [Concomitant]
     Active Substance: TACROLIMUS
     Route: 065
  11. THALIDOMIDE [Concomitant]
     Active Substance: THALIDOMIDE
     Route: 065
  12. LENALIDOMIDE [Concomitant]
     Active Substance: LENALIDOMIDE
     Route: 065
  13. ABATACEPT [Concomitant]
     Active Substance: ABATACEPT
     Route: 065
  14. BELIMUMAB [Concomitant]
     Active Substance: BELIMUMAB
     Route: 065
  15. RITUXIMAB [Concomitant]
     Active Substance: RITUXIMAB
     Route: 065
  16. OFATUMUMAB [Concomitant]
     Active Substance: OFATUMUMAB
     Route: 065
  17. CYCLOPHOSPHAMIDE [Concomitant]
     Active Substance: CYCLOPHOSPHAMIDE
     Dosage: UNK
     Route: 065
  18. ANAKINRA [Concomitant]
     Active Substance: ANAKINRA
     Route: 065
  19. CANAKINUMAB [Concomitant]
     Active Substance: CANAKINUMAB
     Route: 065
  20. RILONACEPT [Concomitant]
     Active Substance: RILONACEPT
     Route: 065
  21. TOCILIZUMAB [Concomitant]
     Active Substance: TOCILIZUMAB
     Route: 065
  22. SARILUMAB [Concomitant]
     Active Substance: SARILUMAB
     Route: 065
  23. USTEKINUMAB [Concomitant]
     Active Substance: USTEKINUMAB
     Route: 065
  24. GUSELKUMAB [Concomitant]
     Active Substance: GUSELKUMAB
     Route: 065
  25. RISANKIZUMAB [Concomitant]
     Active Substance: RISANKIZUMAB
     Dosage: UNK
     Route: 065
  26. SECUKINUMAB [Concomitant]
     Active Substance: SECUKINUMAB
     Route: 065
  27. IXEKIZUMAB [Concomitant]
     Active Substance: IXEKIZUMAB
     Route: 065
  28. TOFACITINIB [Concomitant]
     Active Substance: TOFACITINIB
     Route: 065
  29. BARICITINIB [Concomitant]
     Active Substance: BARICITINIB
     Route: 065
  30. UPADACITINIB [Concomitant]
     Active Substance: UPADACITINIB
     Route: 065
  31. INFLIXIMAB [Concomitant]
     Active Substance: INFLIXIMAB
     Route: 065
  32. ETANERCEPT [Concomitant]
     Active Substance: ETANERCEPT
     Route: 065
  33. GOLIMUMAB [Concomitant]
     Active Substance: GOLIMUMAB
     Route: 065
  34. CERTOLIZUMAB [Concomitant]
     Active Substance: CERTOLIZUMAB
     Route: 065

REACTIONS (8)
  - Acute respiratory distress syndrome [Fatal]
  - Embolism [Fatal]
  - Acute kidney injury [Fatal]
  - Renal failure [Fatal]
  - Sepsis [Fatal]
  - Infection [Fatal]
  - Unevaluable event [Unknown]
  - COVID-19 [Unknown]
